FAERS Safety Report 12261384 (Version 5)
Quarter: 2016Q3

REPORT INFORMATION
  Report Type: Report from Study
  Country: CA (occurrence: CA)
  Receive Date: 20160412
  Receipt Date: 20160712
  Transmission Date: 20161109
  Serious: Yes (Hospitalization, Other)
  Sender: FDA-Public Use
  Company Number: CA-GILEAD-2016-0199915

PATIENT
  Age: 64 Year
  Sex: Male

DRUGS (7)
  1. SULFAMETHOXAZOLE AND TRIMETHOPRIM [Suspect]
     Active Substance: SULFAMETHOXAZOLE\TRIMETHOPRIM
     Indication: MALAISE
     Dosage: UNK
     Route: 065
     Dates: start: 201605
  2. MULTIVITAMINS [Concomitant]
     Active Substance: VITAMINS
  3. ZYDELIG [Suspect]
     Active Substance: IDELALISIB
     Indication: NON-HODGKIN^S LYMPHOMA UNSPECIFIED HISTOLOGY INDOLENT
     Dosage: 150 MG, BID
     Route: 048
     Dates: start: 20160210, end: 20160322
  4. ZYDELIG [Suspect]
     Active Substance: IDELALISIB
     Dosage: UNK
     Route: 065
     Dates: start: 20160401, end: 20160402
  5. TYLENOL [Concomitant]
     Active Substance: ACETAMINOPHEN
  6. ZYDELIG [Suspect]
     Active Substance: IDELALISIB
     Dosage: UNK
     Route: 048
     Dates: start: 20160410, end: 20160617
  7. OMEPRAZOLE. [Concomitant]
     Active Substance: OMEPRAZOLE
     Dosage: 20 MG, UNK

REACTIONS (19)
  - Hepatic enzyme abnormal [Unknown]
  - Aspartate aminotransferase increased [Recovering/Resolving]
  - Infection [Unknown]
  - Erythema [Unknown]
  - Pyrexia [Unknown]
  - Chills [Unknown]
  - Dyspnoea [Recovered/Resolved]
  - Unevaluable event [Unknown]
  - Diarrhoea [Recovering/Resolving]
  - Asthenia [Unknown]
  - Dehydration [Unknown]
  - Rash [Recovered/Resolved]
  - Decreased appetite [Unknown]
  - Diarrhoea [Not Recovered/Not Resolved]
  - Visual impairment [Recovered/Resolved]
  - Renal failure [Not Recovered/Not Resolved]
  - Malaise [Unknown]
  - Vomiting [Recovered/Resolved]
  - Influenza like illness [Recovering/Resolving]

NARRATIVE: CASE EVENT DATE: 20160211
